FAERS Safety Report 4667166-X (Version None)
Quarter: 2005Q2

REPORT INFORMATION
  Report Type: 
  Country: None (occurrence: None)
  Receive Date: 20050520
  Receipt Date: 20040722
  Transmission Date: 20051028
  Serious: Yes (Other)
  Sender: FDA-Public Use
  Company Number: PHEH2004US07968

PATIENT
  Age: 59 Year
  Sex: Male
  Weight: 75 kg

DRUGS (9)
  1. COMBIVENT                               /GFR/ [Concomitant]
     Indication: CHRONIC OBSTRUCTIVE PULMONARY DISEASE
     Dosage: 2 PUFFS QD
     Dates: start: 20011123
  2. ALBUTEROL [Concomitant]
     Indication: CHRONIC OBSTRUCTIVE PULMONARY DISEASE
     Dosage: 2 UFFS EVERY 4 HOURS PRN
     Dates: start: 20040303
  3. FOSINOPRIL [Concomitant]
     Indication: HYPERTENSION
     Dosage: 5 G, QD
     Dates: start: 20050201
  4. MS CONTIN [Concomitant]
     Indication: PAIN
     Dosage: 60 MG, BID
     Dates: start: 20001208
  5. NAPROXEN [Concomitant]
     Indication: BACK PAIN
     Dosage: 500 MG, BID
     Dates: start: 20030115
  6. SOLU-MEDROL [Concomitant]
     Indication: CHRONIC OBSTRUCTIVE PULMONARY DISEASE
     Dosage: 1 PUFF BID
     Dates: start: 20010220
  7. ZOLOFT [Concomitant]
     Indication: DEPRESSION
     Dosage: 100 G, QD
     Dates: start: 20030624
  8. FLUCONAZOLE [Concomitant]
     Indication: FUNGAL INFECTION
     Dosage: 100 G, QD
     Dates: start: 20000612
  9. ZOMETA [Suspect]
     Indication: MULTIPLE MYELOMA
     Dosage: 4 MG EVERY MONTH
     Route: 042
     Dates: start: 20030408, end: 20040211

REACTIONS (5)
  - ASEPTIC NECROSIS BONE [None]
  - DENTAL OPERATION [None]
  - JAW OPERATION [None]
  - TOOTH EXTRACTION [None]
  - WOUND DEBRIDEMENT [None]
